FAERS Safety Report 4694106-X (Version None)
Quarter: 2005Q2

REPORT INFORMATION
  Report Type: 
  Country: None (occurrence: None)
  Receive Date: 20050614
  Receipt Date: 20050209
  Transmission Date: 20051028
  Serious: No
  Sender: FDA-Public Use
  Company Number: USA050290465

PATIENT
  Sex: Male

DRUGS (3)
  1. CIALIS [Suspect]
     Dosage: 20 MG
     Dates: start: 20050203, end: 20050203
  2. COUMADIN [Concomitant]
  3. ZOCOR (SIMVASTATIN RATIOPHARM) [Concomitant]

REACTIONS (1)
  - MYALGIA [None]
